FAERS Safety Report 5648530-9 (Version None)
Quarter: 2008Q1

REPORT INFORMATION
  Report Type: 
  Country: None (occurrence: None)
  Receive Date: 20080229
  Receipt Date: 20080213
  Transmission Date: 20080703
  Serious: Yes (Life-Threatening, Hospitalization)
  Sender: FDA-Public Use
  Company Number: S08-FRA-00618-01

PATIENT
  Age: 47 Year
  Sex: Female

DRUGS (6)
  1. CITALOPRAM HYDROBROMIDE [Suspect]
     Indication: DEPRESSION
     Dosage: 20 MG ONCE PO
     Route: 048
     Dates: start: 20070827, end: 20070827
  2. CITALOPRAM HYDROBROMIDE [Suspect]
     Indication: DEPRESSION
     Dosage: 20 MG QD PO
     Route: 048
     Dates: start: 20070907
  3. CITALOPRAM HYDROBROMIDE [Suspect]
     Indication: DEPRESSION
  4. TERCIAN             (CYAMEMAZINE) [Suspect]
     Indication: DEPRESSION
     Dosage: 240 DROPS ONCE PO
     Route: 048
     Dates: start: 20070827, end: 20070827
  5. TERCIAN                   (CYAMEMAZINE) [Suspect]
     Indication: DEPRESSION
  6. CLONAZEPAM [Concomitant]

REACTIONS (8)
  - BLOOD PRESSURE DECREASED [None]
  - BRADYCARDIA [None]
  - DEPRESSION [None]
  - DISEASE RECURRENCE [None]
  - DRUG TOXICITY [None]
  - SUICIDAL IDEATION [None]
  - SUICIDE ATTEMPT [None]
  - TREATMENT NONCOMPLIANCE [None]
